FAERS Safety Report 4383895-X (Version None)
Quarter: 2004Q2

REPORT INFORMATION
  Report Type: 
  Country: None (occurrence: None)
  Receive Date: 20040623
  Receipt Date: 20040623
  Transmission Date: 20050107
  Serious: Yes (Hospitalization)
  Sender: FDA-Public Use
  Company Number: None

PATIENT
  Age: 42 Year
  Sex: Female
  Weight: 78.9259 kg

DRUGS (8)
  1. ABILIFY [Suspect]
     Indication: PSYCHOTIC DISORDER
     Dosage: 30 MG PO QD
     Route: 048
  2. DITROPAN XL [Concomitant]
  3. PRILOSEC [Concomitant]
  4. RISPERDAL [Concomitant]
  5. TRAZODONE HCL [Concomitant]
  6. ZOLOFT [Concomitant]
  7. RESTORIL [Concomitant]
  8. ULTRACET [Concomitant]

REACTIONS (4)
  - ASTHENIA [None]
  - BRADYCARDIA [None]
  - CHEST DISCOMFORT [None]
  - DIFFICULTY IN WALKING [None]
